FAERS Safety Report 16650834 (Version 2)
Quarter: 2019Q3

REPORT INFORMATION
  Report Type: Spontaneous
  Country: US (occurrence: US)
  Receive Date: 20190731
  Receipt Date: 20190823
  Transmission Date: 20191004
  Serious: Yes (Hospitalization, Other)
  Sender: FDA-Public Use
  Company Number: US-GLAXOSMITHKLINE-US2019AMR136097

PATIENT
  Sex: Male

DRUGS (1)
  1. MEPRON [Suspect]
     Active Substance: ATOVAQUONE
     Indication: PRODUCT USED FOR UNKNOWN INDICATION
     Dosage: UNK
     Route: 048
     Dates: start: 20190608

REACTIONS (5)
  - Venous injury [Unknown]
  - Drug level increased [Unknown]
  - Swelling [Unknown]
  - Hospitalisation [Unknown]
  - Arterial injury [Unknown]

NARRATIVE: CASE EVENT DATE: 2019
